FAERS Safety Report 4376858-1 (Version None)
Quarter: 2004Q2

REPORT INFORMATION
  Report Type: 
  Country: None (occurrence: None)
  Receive Date: 20040608
  Receipt Date: 20030616
  Transmission Date: 20050107
  Serious: Yes (Other)
  Sender: FDA-Public Use
  Company Number: 200312041BCC

PATIENT
  Sex: Female

DRUGS (1)
  1. ALEVE [Suspect]
     Indication: PAIN IN EXTREMITY
     Dosage: ORAL
     Route: 048

REACTIONS (4)
  - ASTHMA [None]
  - AURICULAR SWELLING [None]
  - HYPERSENSITIVITY [None]
  - SWELLING FACE [None]
